FAERS Safety Report 9065145 (Version 1)
Quarter: 2013Q1

REPORT INFORMATION
  Report Type: Spontaneous
  Country: US (occurrence: US)
  Receive Date: 20130214
  Receipt Date: 20130214
  Transmission Date: 20140127
  Serious: No
  Sender: FDA-Public Use
  Company Number: US-PFIZER INC-2013056983

PATIENT
  Sex: Female

DRUGS (3)
  1. CARDURA [Suspect]
     Dosage: 0.5 MG, 2X/DAY
     Route: 048
     Dates: start: 201302, end: 201302
  2. SYNTHROID [Concomitant]
     Dosage: UNK
     Route: 048
  3. ACIPHEX [Concomitant]
     Dosage: UNK
     Route: 048

REACTIONS (3)
  - Hypersensitivity [Unknown]
  - Paraesthesia [Unknown]
  - Sensory disturbance [Unknown]
